FAERS Safety Report 10444003 (Version 1)
Quarter: 2014Q3

REPORT INFORMATION
  Report Type: Spontaneous
  Country: US (occurrence: US)
  Receive Date: 20140910
  Receipt Date: 20140910
  Transmission Date: 20150326
  Serious: No
  Sender: FDA-Public Use
  Company Number: US-TARO-2014TAR00138

PATIENT
  Age: 45 Year
  Sex: Female
  Weight: 108.84 kg

DRUGS (1)
  1. WARFARIN SODIUM TABLETS USP 5MG [Suspect]
     Active Substance: WARFARIN SODIUM
     Indication: DEEP VEIN THROMBOSIS
     Dosage: 10 MG, 1X/DAY
     Route: 048
     Dates: start: 2014

REACTIONS (1)
  - Urine alcohol test positive [Not Recovered/Not Resolved]

NARRATIVE: CASE EVENT DATE: 20140622
